FAERS Safety Report 19258849 (Version 1)
Quarter: 2021Q2

REPORT INFORMATION
  Report Type: Report from Study
  Country: US (occurrence: US)
  Receive Date: 20210514
  Receipt Date: 20210514
  Transmission Date: 20210717
  Serious: Yes (Hospitalization)
  Sender: FDA-Public Use
  Company Number: US-BAYER-2021-140158

PATIENT
  Age: 43 Year
  Sex: Male

DRUGS (1)
  1. STIVARGA [Suspect]
     Active Substance: REGORAFENIB
     Indication: COLORECTAL CANCER
     Dosage: 80 MG, QD FOR 21 DAYS ON, 7 OFF
     Route: 048
     Dates: start: 20210507, end: 2021

REACTIONS (7)
  - Abnormal behaviour [Unknown]
  - Cerebral haemorrhage [Unknown]
  - Hypotension [Unknown]
  - Speech disorder [Unknown]
  - Off label use [None]
  - Intracranial mass [None]
  - Coordination abnormal [Unknown]

NARRATIVE: CASE EVENT DATE: 20210507
